FAERS Safety Report 5743127-4 (Version None)
Quarter: 2008Q2

REPORT INFORMATION
  Report Type: 
  Country: None (occurrence: None)
  Receive Date: 20080519
  Receipt Date: 20080507
  Transmission Date: 20081010
  Serious: Yes (Other)
  Sender: FDA-Public Use
  Company Number: US-ELI_LILLY_AND_COMPANY-US200805001320

PATIENT
  Age: 41 Year
  Sex: Female

DRUGS (1)
  1. PROZAC [Suspect]
     Dosage: 80 MG, DAILY (1/D)
     Dates: start: 20040101

REACTIONS (1)
  - BREAST CANCER [None]
